FAERS Safety Report 7953261-6 (Version None)
Quarter: 2011Q4

REPORT INFORMATION
  Report Type: 
  Country: None (occurrence: None)
  Receive Date: 20111201
  Receipt Date: 20111115
  Transmission Date: 20120403
  Serious: Yes (Death)
  Sender: FDA-Public Use
  Company Number: FR-ROCHE-1007444

PATIENT
  Age: 24 Year
  Sex: Female

DRUGS (8)
  1. AMIKACIN [Suspect]
     Indication: PYREXIA
     Route: 042
     Dates: start: 20110909
  2. TIENAM [Suspect]
     Indication: PYREXIA
     Route: 042
     Dates: start: 20110909, end: 20110918
  3. GANCICLOVIR SODIUM [Suspect]
     Indication: CYTOMEGALOVIRUS INFECTION
     Route: 042
     Dates: start: 20110830, end: 20110916
  4. FOSCAVIR [Suspect]
     Indication: CYTOMEGALOVIRUS INFECTION
     Route: 042
     Dates: start: 20110903, end: 20110909
  5. VANCOCIN HYDROCHLORIDE [Suspect]
     Indication: PYREXIA
     Route: 042
     Dates: start: 20110909, end: 20110913
  6. PIPERACILLIN AND TAZOBACTAM [Concomitant]
     Indication: PYREXIA
     Route: 042
     Dates: start: 20110825, end: 20110904
  7. CANCIDAS [Concomitant]
     Indication: CANDIDIASIS
     Route: 042
     Dates: start: 20110826, end: 20110906
  8. IMURAN [Concomitant]
     Indication: CROHN'S DISEASE
     Route: 048
     Dates: start: 20110201, end: 20110825

REACTIONS (1)
  - PANCYTOPENIA [None]
